FAERS Safety Report 4715555-7 (Version None)
Quarter: 2005Q3

REPORT INFORMATION
  Report Type: 
  Country: None (occurrence: None)
  Receive Date: 20050713
  Receipt Date: 20050629
  Transmission Date: 20060218
  Serious: Yes (Other)
  Sender: FDA-Public Use
  Company Number: 2005SP001677

PATIENT
  Age: 50 Year
  Sex: Female

DRUGS (4)
  1. LUNESTA [Suspect]
     Dosage: 3 MG; 1X; ORAL
     Route: 048
     Dates: start: 20050601, end: 20050601
  2. RITALIN [Concomitant]
  3. EFFEXOR [Concomitant]
  4. NEURONTIN [Concomitant]

REACTIONS (4)
  - AFFECTIVE DISORDER [None]
  - BIPOLAR II DISORDER [None]
  - DEPRESSION SUICIDAL [None]
  - TREMOR [None]
